FAERS Safety Report 4497203-7 (Version None)
Quarter: 2004Q3

REPORT INFORMATION
  Report Type: 
  Country: None (occurrence: None)
  Receive Date: 20040927
  Receipt Date: 20040608
  Transmission Date: 20050211
  Serious: No
  Sender: FDA-Public Use
  Company Number: USA040668861

PATIENT
  Age: 63 Year
  Sex: Male
  Weight: 74 kg

DRUGS (6)
  1. STRATTERA [Suspect]
     Dates: start: 20040510, end: 20040603
  2. CIALIS [Suspect]
     Indication: ERECTILE DYSFUNCTION
     Dosage: 20 MG AS NEEDED
     Dates: start: 20040501
  3. CIALIS [Suspect]
     Dosage: 20 MG AS NEEDED
     Dates: start: 20040501
  4. NEURONTIN [Concomitant]
  5. LIPITOR [Concomitant]
  6. DOXAZOSIN [Concomitant]

REACTIONS (8)
  - ANOREXIA [None]
  - EPISTAXIS [None]
  - HEADACHE [None]
  - INSOMNIA [None]
  - NASAL CONGESTION [None]
  - NOCTURIA [None]
  - URINARY HESITATION [None]
  - URINE FLOW DECREASED [None]
